FAERS Safety Report 10091908 (Version 1)
Quarter: 2014Q2

REPORT INFORMATION
  Report Type: Spontaneous
  Country: US (occurrence: US)
  Receive Date: 20140421
  Receipt Date: 20140421
  Transmission Date: 20141212
  Serious: Yes (Hospitalization)
  Sender: FDA-Public Use
  Company Number: US-RB-066294-14

PATIENT
  Age: 50 Year
  Sex: Male

DRUGS (6)
  1. BUPRENORPHINE/NALOXONE GENERIC [Suspect]
     Indication: DRUG DEPENDENCE
     Route: 060
     Dates: start: 20131113, end: 20140219
  2. TRAZODONE [Concomitant]
     Indication: DEPRESSION
     Route: 048
  3. REMERON [Concomitant]
     Indication: DEPRESSION
     Route: 048
  4. EFFEXOR [Concomitant]
     Indication: DEPRESSION
     Route: 048
  5. ALBUTEROL [Concomitant]
     Indication: CHRONIC OBSTRUCTIVE PULMONARY DISEASE
     Dosage: DOSING DETAILS UNKNOWN
     Route: 055
  6. AMLODIPINE [Concomitant]
     Indication: CARDIAC DISORDER
     Dosage: DOSING DETAILS UNKNOWN
     Route: 060

REACTIONS (2)
  - Sedation [Recovered/Resolved]
  - Hypercapnia [Recovered/Resolved]
